FAERS Safety Report 4428719-7 (Version None)
Quarter: 2004Q3

REPORT INFORMATION
  Report Type: 
  Country: None (occurrence: None)
  Receive Date: 20040818
  Receipt Date: 20040203
  Transmission Date: 20050211
  Serious: No
  Sender: FDA-Public Use
  Company Number: US-BRISTOL-MYERS SQUIBB COMPANY-12495347

PATIENT
  Age: 77 Year
  Sex: Male

DRUGS (1)
  1. TEQUIN [Suspect]
     Indication: CYSTOSCOPY
     Route: 042
     Dates: start: 20040203, end: 20040203

REACTIONS (2)
  - INJECTION SITE ERYTHEMA [None]
  - INJECTION SITE REACTION [None]
